FAERS Safety Report 5001049-0 (Version None)
Quarter: 2006Q2

REPORT INFORMATION
  Report Type: 
  Country: None (occurrence: None)
  Receive Date: 20060512
  Receipt Date: 20060504
  Transmission Date: 20061013
  Serious: Yes (Hospitalization)
  Sender: FDA-Public Use
  Company Number: CH-GLAXOSMITHKLINE-B0423385A

PATIENT
  Age: 76 Year
  Sex: Male

DRUGS (12)
  1. AUGMENTIN '125' [Suspect]
     Indication: BACTERIAL INFECTION
     Dosage: 1200MG PER DAY
     Route: 042
     Dates: start: 20050226, end: 20050311
  2. SINTROM [Concomitant]
     Indication: ATRIAL FIBRILLATION
     Route: 048
  3. DILATREND [Concomitant]
     Indication: HYPERTENSION
     Dosage: 6.25MG TWICE PER DAY
     Route: 048
  4. LACTULOSE [Concomitant]
     Indication: CONSTIPATION
     Dates: start: 20050322
  5. LASIX [Concomitant]
     Indication: CARDIAC FAILURE
     Dosage: 120MG THREE TIMES PER DAY
     Route: 048
  6. PASPERTIN [Concomitant]
     Indication: NAUSEA
     Dosage: 10MG THREE TIMES PER DAY
     Dates: start: 20050323
  7. ZOCOR [Concomitant]
     Indication: PROPHYLAXIS
     Dosage: 20MG PER DAY
     Dates: start: 20050207
  8. EFFEXOR [Concomitant]
     Indication: DEPRESSION
     Dosage: 18.75MG PER DAY
     Route: 048
  9. TEMGESIC [Concomitant]
     Dosage: .6MG THREE TIMES PER DAY
  10. ACETAMINOPHEN [Concomitant]
     Dosage: 1000MG THREE TIMES PER DAY
     Dates: start: 20050321
  11. MYCOSTATIN [Concomitant]
     Dosage: 1ML FOUR TIMES PER DAY
     Dates: start: 20050216, end: 20050309
  12. LAXOBERON [Concomitant]
     Dates: end: 20050323

REACTIONS (2)
  - CREATININE RENAL CLEARANCE DECREASED [None]
  - DERMATITIS BULLOUS [None]
